FAERS Safety Report 5101057-5 (Version None)
Quarter: 2006Q3

REPORT INFORMATION
  Report Type: 
  Country: None (occurrence: None)
  Receive Date: 20060911
  Receipt Date: 20060828
  Transmission Date: 20061208
  Serious: Yes (Hospitalization)
  Sender: FDA-Public Use
  Company Number: US-AMGEN-US191460

PATIENT
  Sex: Female

DRUGS (2)
  1. ENBREL [Suspect]
     Indication: RHEUMATOID ARTHRITIS
     Route: 058
     Dates: start: 20060105
  2. METHOTREXATE [Concomitant]

REACTIONS (5)
  - ARTHRALGIA [None]
  - HYSTERECTOMY [None]
  - INCREASED APPETITE [None]
  - PAIN IN EXTREMITY [None]
  - WEIGHT INCREASED [None]
